FAERS Safety Report 5349489-4 (Version None)
Quarter: 2007Q2

REPORT INFORMATION
  Report Type: 
  Country: None (occurrence: None)
  Receive Date: 20070504
  Receipt Date: 20060822
  Transmission Date: 20071010
  Serious: Yes (Other)
  Sender: FDA-Public Use
  Company Number: PHEH2006US10750

PATIENT
  Age: 65 Year
  Sex: Male
  Weight: 77.6 kg

DRUGS (1)
  1. DIOVAN HCT [Suspect]
     Indication: HYPERTENSION
     Dosage: 160 MG VAL/12.5MG  HCT, QD
     Dates: start: 20040101, end: 20060821

REACTIONS (5)
  - BLOOD CHLORIDE DECREASED [None]
  - DIZZINESS [None]
  - FEELING HOT [None]
  - HYPOKALAEMIA [None]
  - HYPONATRAEMIA [None]
